FAERS Safety Report 16394358 (Version 1)
Quarter: 2019Q2

REPORT INFORMATION
  Report Type: Spontaneous
  Country: KR (occurrence: KR)
  Receive Date: 20190605
  Receipt Date: 20190605
  Transmission Date: 20190711
  Serious: Yes (Other)
  Sender: FDA-Public Use
  Company Number: KR-SCILEX PHARMACEUTICALS INC.-2019SCX00041

PATIENT
  Age: 36 Year
  Sex: Female

DRUGS (10)
  1. LIDOCAINE. [Suspect]
     Active Substance: LIDOCAINE
     Dosage: [THORN REMOVAL]
     Route: 065
     Dates: start: 2006, end: 2006
  2. LIDOCAINE. [Suspect]
     Active Substance: LIDOCAINE
     Dosage: [TOOTH IMPLANT]
     Route: 065
     Dates: start: 2016, end: 2016
  3. IFN-GAMMA [Concomitant]
     Dosage: [WITH IFN-GAMMA INCLUDED. IFN-GAMMA (INTERMAX GAMMA, LG CHEMISTRY) WAS ADMINISTERED SUBCUTANEOUSLY A
     Route: 058
  4. LIDOCAINE. [Suspect]
     Active Substance: LIDOCAINE
     Dosage: [DURING DESENSITIZATION: THE INITIAL TESTING DOSE WAS 1 NG, AND THEN THE DOSE WAS INCREASED IN INCRE
     Route: 042
  5. LIDOCAINE. [Suspect]
     Active Substance: LIDOCAINE
     Indication: LOCAL ANAESTHESIA
     Dosage: ^SEVERAL ML^ [LIGAMENT RUPTURE]
     Route: 065
     Dates: start: 2006, end: 2006
  6. ACETAMINOPHEN. [Concomitant]
     Active Substance: ACETAMINOPHEN
     Dosage: 650 MG [PRESCRIBED 15-30 MINUTES BEFORE THE IFN-GAMMA INJECTION]
     Route: 065
  7. LIDOCAINE. [Suspect]
     Active Substance: LIDOCAINE
     Dosage: [3 DAYS AFTER DESENSITIZATION; TOOTH EXTRACTION AFTER DESENSITIZATION]
     Route: 065
  8. LIDOCAINE. [Suspect]
     Active Substance: LIDOCAINE
     Dosage: [DENTAL PROCEDURES]
     Route: 065
  9. LIDOCAINE. [Suspect]
     Active Substance: LIDOCAINE
     Dosage: [1 DAY AFTER DESENSITIZATION; 20 MG IN MORNING AND 40 MG IN EVENING]
     Route: 065
  10. LIDOCAINE. [Suspect]
     Active Substance: LIDOCAINE
     Dosage: [2 DAYS AFTER DESENSITIZATION; 40 MG]
     Route: 065

REACTIONS (1)
  - Anaphylactic reaction [Recovered/Resolved]

NARRATIVE: CASE EVENT DATE: 2006
